FAERS Safety Report 10814973 (Version 1)
Quarter: 2015Q1

REPORT INFORMATION
  Report Type: Spontaneous
  Country: US (occurrence: US)
  Receive Date: 20150218
  Receipt Date: 20150218
  Transmission Date: 20150721
  Serious: No
  Sender: FDA-Public Use
  Company Number: US-009507513-1502USA007774

PATIENT

DRUGS (1)
  1. PROPECIA [Suspect]
     Active Substance: FINASTERIDE
     Indication: PRODUCT USED FOR UNKNOWN INDICATION
     Route: 048

REACTIONS (8)
  - Feeling abnormal [Unknown]
  - Ejaculation disorder [Unknown]
  - Anxiety [Unknown]
  - Libido decreased [Unknown]
  - Erectile dysfunction [Unknown]
  - Depression [Unknown]
  - Cognitive disorder [Unknown]
  - Sexual dysfunction [Unknown]
